FAERS Safety Report 7005784-4 (Version None)
Quarter: 2010Q3

REPORT INFORMATION
  Report Type: 
  Country: None (occurrence: None)
  Receive Date: 20100921
  Receipt Date: 20100920
  Transmission Date: 20110219
  Serious: Yes (Hospitalization)
  Sender: FDA-Public Use
  Company Number: US-BRISTOL-MYERS SQUIBB COMPANY-15293145

PATIENT

DRUGS (1)
  1. HYDREA [Suspect]

REACTIONS (1)
  - GASTROINTESTINAL TUBE INSERTION [None]
